FAERS Safety Report 13899657 (Version 1)
Quarter: 2017Q3

REPORT INFORMATION
  Report Type: Spontaneous
  Country: US (occurrence: US)
  Receive Date: 20170823
  Receipt Date: 20170823
  Transmission Date: 20171127
  Serious: No
  Sender: FDA-Public Use
  Company Number: US-JAZZ-2017-US-008394

PATIENT
  Sex: Female

DRUGS (37)
  1. XYZAL [Concomitant]
     Active Substance: LEVOCETIRIZINE DIHYDROCHLORIDE
  2. PROVIGIL [Concomitant]
     Active Substance: MODAFINIL
  3. VALTREX [Concomitant]
     Active Substance: VALACYCLOVIR HYDROCHLORIDE
  4. FLEXERIL [Concomitant]
     Active Substance: CYCLOBENZAPRINE HYDROCHLORIDE
  5. PHENTERMINE. [Concomitant]
     Active Substance: PHENTERMINE
  6. XYREM [Suspect]
     Active Substance: SODIUM OXYBATE
     Indication: NARCOLEPSY
     Dosage: 3G, BID
     Route: 048
     Dates: start: 200810, end: 2008
  7. HYDROCODONE BITARTRATE AND ACETAMINOPHEN [Concomitant]
     Active Substance: ACETAMINOPHEN\HYDROCODONE BITARTRATE
  8. BUSPAR [Concomitant]
     Active Substance: BUSPIRONE HYDROCHLORIDE
  9. XYREM [Suspect]
     Active Substance: SODIUM OXYBATE
     Dosage: 3.75 G, BID
  10. ZOLPIDEM TARTRATE. [Concomitant]
     Active Substance: ZOLPIDEM TARTRATE
  11. PANTOPRAZOLE SODIUM. [Concomitant]
     Active Substance: PANTOPRAZOLE SODIUM
  12. DULOXETINE HCL [Concomitant]
     Active Substance: DULOXETINE HYDROCHLORIDE
  13. BIOTIN [Concomitant]
     Active Substance: BIOTIN
  14. LIDOCAINE HCL [Concomitant]
     Active Substance: LIDOCAINE HYDROCHLORIDE
  15. DEPLIN [Concomitant]
     Active Substance: LEVOMEFOLATE CALCIUM
  16. NUVIGIL [Concomitant]
     Active Substance: ARMODAFINIL
  17. ACEBUTOLOL [Concomitant]
     Active Substance: ACEBUTOLOL
  18. RESTORIL [Concomitant]
     Active Substance: TEMAZEPAM
  19. VYVANSE [Concomitant]
     Active Substance: LISDEXAMFETAMINE DIMESYLATE
  20. AMBIEN [Concomitant]
     Active Substance: ZOLPIDEM TARTRATE
  21. XYREM [Suspect]
     Active Substance: SODIUM OXYBATE
     Dosage: 4.5G, TID
     Route: 048
     Dates: start: 201307
  22. XYREM [Suspect]
     Active Substance: SODIUM OXYBATE
     Dosage: 2.25 G, BID
     Route: 048
  23. TYLENOL ARTHRITIS PAIN [Concomitant]
     Active Substance: ACETAMINOPHEN
  24. AZITHROMYCIN ANHYDROUS. [Concomitant]
     Active Substance: AZITHROMYCIN ANHYDROUS
  25. XYREM [Suspect]
     Active Substance: SODIUM OXYBATE
     Indication: CATAPLEXY
     Dosage: DOSE ADJUSTMENTS
     Route: 048
     Dates: start: 2008, end: 201306
  26. CALCIUM [Concomitant]
     Active Substance: CALCIUM
  27. ESTER-C                            /00008001/ [Concomitant]
     Active Substance: ASCORBIC ACID
  28. ACYCLOVIR                          /00587301/ [Concomitant]
     Active Substance: ACYCLOVIR
  29. NAPROXEN. [Concomitant]
     Active Substance: NAPROXEN
  30. CYMBALTA [Concomitant]
     Active Substance: DULOXETINE HYDROCHLORIDE
  31. EDLUAR [Concomitant]
     Active Substance: ZOLPIDEM TARTRATE
  32. SINGULAIR [Concomitant]
     Active Substance: MONTELUKAST SODIUM
  33. VITAMIN D                          /00107901/ [Concomitant]
     Active Substance: ERGOCALCIFEROL
  34. CLONAZEPAM. [Concomitant]
     Active Substance: CLONAZEPAM
  35. CONCERTA [Concomitant]
     Active Substance: METHYLPHENIDATE HYDROCHLORIDE
  36. LAMICTAL [Concomitant]
     Active Substance: LAMOTRIGINE
  37. MSM [Concomitant]
     Active Substance: DIMETHYL SULFONE

REACTIONS (2)
  - Drug titration error [Unknown]
  - Physiotherapy [Unknown]

NARRATIVE: CASE EVENT DATE: 2015
